FAERS Safety Report 11400079 (Version 1)
Quarter: 2015Q3

REPORT INFORMATION
  Report Type: Spontaneous
  Country: US (occurrence: None)
  Receive Date: 20150819
  Receipt Date: 20150819
  Transmission Date: 20151125
  Serious: Yes (Hospitalization)
  Sender: FDA-Public Use
  Company Number: None

PATIENT
  Age: 67 Year
  Sex: Female
  Weight: 75.8 kg

DRUGS (15)
  1. NORVASC [Concomitant]
     Active Substance: AMLODIPINE BESYLATE
  2. CLOBETASOL [Concomitant]
     Active Substance: CLOBETASOL
  3. CAPSAICIN. [Concomitant]
     Active Substance: CAPSAICIN
  4. HYDROCORTISONE. [Concomitant]
     Active Substance: HYDROCORTISONE
  5. CALCIUM AND VIT D [Concomitant]
     Active Substance: CALCIUM\VITAMIN D
  6. SYNTHROID [Concomitant]
     Active Substance: LEVOTHYROXINE SODIUM
  7. FLUOCINONIDE. [Concomitant]
     Active Substance: FLUOCINONIDE
  8. XANAX [Concomitant]
     Active Substance: ALPRAZOLAM
  9. EVEROLIMUS [Suspect]
     Active Substance: EVEROLIMUS
     Indication: OVARIAN CANCER
     Route: 048
     Dates: start: 20150129
  10. CALCIPOTRIENE. [Concomitant]
     Active Substance: CALCIPOTRIENE
  11. GABAPENTIN. [Concomitant]
     Active Substance: GABAPENTIN
  12. TACROLIMUS. [Concomitant]
     Active Substance: TACROLIMUS
  13. CIPROFLOXACIN. [Concomitant]
     Active Substance: CIPROFLOXACIN
  14. LETROZOLE. [Concomitant]
     Active Substance: LETROZOLE
  15. METFORMIN [Concomitant]
     Active Substance: METFORMIN HYDROCHLORIDE

REACTIONS (2)
  - Abdominal hernia [None]
  - Small intestinal obstruction [None]

NARRATIVE: CASE EVENT DATE: 20150816
